FAERS Safety Report 5278332-7 (Version None)
Quarter: 2007Q1

REPORT INFORMATION
  Report Type: 
  Country: None (occurrence: None)
  Receive Date: 20070328
  Receipt Date: 20070315
  Transmission Date: 20070707
  Serious: Yes (Other)
  Sender: FDA-Public Use
  Company Number: FR-NOVOPROD-261793

PATIENT
  Age: 32 Year
  Sex: Female
  Weight: 63 kg

DRUGS (4)
  1. NORDITROPIN SIMPLEXX [Suspect]
     Indication: GROWTH HORMONE DEFICIENCY
     Dosage: 1 MG, QD
     Route: 058
     Dates: start: 20060602
  2. MINIRIN [Concomitant]
     Dosage: .6 MG, QD
     Route: 048
     Dates: start: 20050407
  3. HYDROCORTISONE [Concomitant]
     Dosage: 15 MG, QD
     Route: 048
     Dates: start: 20050407
  4. LEVOTHYROXINE SODIUM [Concomitant]
     Dosage: 75 UG, QD
     Route: 048
     Dates: start: 20070206

REACTIONS (1)
  - RATHKE'S CLEFT CYST [None]
